FAERS Safety Report 8597770-8 (Version None)
Quarter: 2012Q3

REPORT INFORMATION
  Report Type: 
  Country: None (occurrence: None)
  Receive Date: 20120816
  Receipt Date: 20120811
  Transmission Date: 20120928
  Serious: Yes (Other)
  Sender: FDA-Public Use
  Company Number: PHFR2012GB004473

PATIENT
  Sex: Male

DRUGS (6)
  1. VITA-E [Concomitant]
  2. COD-LIVER OIL [Concomitant]
  3. EXELON [Suspect]
     Dosage: 4.6 MG, DAILY
     Route: 062
  4. EXELON [Suspect]
     Dosage: 9.5 MG, DAILY
     Route: 062
  5. QUETIAPINE [Concomitant]
  6. ASCORBIC ACID (VIT C) [Concomitant]
     Dosage: 1000 MG, DAILY

REACTIONS (7)
  - INAPPROPRIATE SCHEDULE OF DRUG ADMINISTRATION [None]
  - HALLUCINATION [None]
  - APPLICATION SITE WARMTH [None]
  - MUSCULOSKELETAL STIFFNESS [None]
  - MEMORY IMPAIRMENT [None]
  - PENILE INFECTION [None]
  - FALL [None]
